FAERS Safety Report 5860775-1 (Version None)
Quarter: 2008Q3

REPORT INFORMATION
  Report Type: 
  Country: None (occurrence: None)
  Receive Date: 20080827
  Receipt Date: 20071116
  Transmission Date: 20090109
  Serious: No
  Sender: FDA-Public Use
  Company Number: US-ABBOTT-07P-163-0425260-00

PATIENT
  Sex: Female
  Weight: 68.1 kg

DRUGS (2)
  1. COATED PDS [Suspect]
     Indication: BLOOD CHOLESTEROL INCREASED
     Route: 048
     Dates: start: 20071111, end: 20071111
  2. COATED PDS [Suspect]
     Route: 048
     Dates: start: 20071116, end: 20071116

REACTIONS (1)
  - MUSCLE SPASMS [None]
